FAERS Safety Report 10194899 (Version 2)
Quarter: 2014Q2

REPORT INFORMATION
  Report Type: Spontaneous
  Country: US (occurrence: US)
  Receive Date: 20140526
  Receipt Date: 20140625
  Transmission Date: 20141212
  Serious: No
  Sender: FDA-Public Use
  Company Number: US-PFIZER INC-2014140403

PATIENT
  Sex: Female

DRUGS (3)
  1. GABAPENTIN [Suspect]
     Indication: RESTLESS LEGS SYNDROME
     Dosage: 400 MG, 1X/DAY
     Route: 048
     Dates: start: 2014
  2. GABAPENTIN [Suspect]
     Indication: MYOCLONUS
     Dosage: 300 MG, 1X/DAY
     Route: 048
     Dates: start: 2014
  3. SYNTHROID [Concomitant]
     Indication: HYPOTHYROIDISM
     Dosage: 250 MG, 1X/DAY
     Route: 048

REACTIONS (1)
  - Palpitations [Not Recovered/Not Resolved]
